FAERS Safety Report 8032848-9 (Version None)
Quarter: 2011Q4

REPORT INFORMATION
  Report Type: 
  Country: None (occurrence: None)
  Receive Date: 20111202
  Receipt Date: 20091203
  Transmission Date: 20120403
  Serious: Yes (Hospitalization)
  Sender: FDA-Public Use
  Company Number: 2009-198568-NL

PATIENT
  Age: 33 Year
  Sex: Female
  Weight: 174.6349 kg

DRUGS (4)
  1. PRILOSEC [Concomitant]
  2. NUVARING [Suspect]
     Indication: CONTRACEPTION
     Dates: start: 20060301, end: 20070906
  3. DIOVAN HCT [Concomitant]
  4. MOTRIN [Concomitant]

REACTIONS (1)
  - DEEP VEIN THROMBOSIS [None]
